FAERS Safety Report 13563877 (Version 1)
Quarter: 2017Q2

REPORT INFORMATION
  Report Type: Spontaneous
  Country: CN (occurrence: CN)
  Receive Date: 20170519
  Receipt Date: 20170519
  Transmission Date: 20170830
  Serious: Yes (Other)
  Sender: FDA-Public Use
  Company Number: CN-ASTRAZENECA-2017SE45086

PATIENT
  Age: 60 Year
  Sex: Male

DRUGS (2)
  1. NEXIUM [Suspect]
     Active Substance: ESOMEPRAZOLE MAGNESIUM
     Indication: GASTRIC HAEMORRHAGE
     Dosage: ONE INJECTION PER HALF AN HOUR, TWO INJECTIONS IN ONE HOUR
     Route: 042
     Dates: start: 201704, end: 201704
  2. NEXIUM [Suspect]
     Active Substance: ESOMEPRAZOLE MAGNESIUM
     Indication: GASTROINTESTINAL HAEMORRHAGE
     Dosage: ONE INJECTION PER HALF AN HOUR, TWO INJECTIONS IN ONE HOUR
     Route: 042
     Dates: start: 201704, end: 201704

REACTIONS (5)
  - Infusion related reaction [Recovered/Resolved]
  - Chills [Recovered/Resolved]
  - Syncope [Recovered/Resolved]
  - Overdose [Recovered/Resolved]
  - Seizure [Recovered/Resolved]

NARRATIVE: CASE EVENT DATE: 201704
